FAERS Safety Report 4809330-2 (Version None)
Quarter: 2005Q4

REPORT INFORMATION
  Report Type: 
  Country: None (occurrence: None)
  Receive Date: 20051021
  Receipt Date: 20030603
  Transmission Date: 20060501
  Serious: No
  Sender: FDA-Public Use
  Company Number: JP_030601078

PATIENT
  Sex: Female

DRUGS (1)
  1. ZYPREXA [Suspect]

REACTIONS (2)
  - BODY TEMPERATURE INCREASED [None]
  - MENSTRUATION IRREGULAR [None]
